FAERS Safety Report 8892161 (Version 1)
Quarter: 2012Q4

REPORT INFORMATION
  Report Type: Spontaneous
  Country: US (occurrence: None)
  Receive Date: 20121031
  Receipt Date: 20121031
  Transmission Date: 20130627
  Serious: Yes (Death)
  Sender: FDA-Public Use
  Company Number: DSA_60376_2012

PATIENT
  Age: 62 Year
  Sex: Male

DRUGS (1)
  1. XENAZINE 12.5 MG (NOT SPECIFIED) [Suspect]
     Dosage: 0.5 to 1 tablets, three times daily oral
     Dates: start: 201207, end: 20121019

REACTIONS (1)
  - Death [None]
